FAERS Safety Report 11816562 (Version 3)
Quarter: 2016Q3

REPORT INFORMATION
  Report Type: Report from Study
  Country: BE (occurrence: BE)
  Receive Date: 20151210
  Receipt Date: 20160819
  Transmission Date: 20161109
  Serious: Yes (Other)
  Sender: FDA-Public Use
  Company Number: BE-ROCHE-1674604

PATIENT
  Age: 75 Year
  Sex: Male

DRUGS (16)
  1. CELLCEPT [Suspect]
     Active Substance: MYCOPHENOLATE MOFETIL\MYCOPHENOLATE MOFETIL HYDROCHLORIDE
     Indication: TUBULOINTERSTITIAL NEPHRITIS
     Route: 065
     Dates: start: 20151102, end: 20151107
  2. MEDROL [Suspect]
     Active Substance: METHYLPREDNISOLONE
     Indication: TUBULOINTERSTITIAL NEPHRITIS
     Route: 065
  3. PANTOMED (BELGIUM) [Concomitant]
     Route: 065
     Dates: start: 20150123
  4. CELLCEPT [Suspect]
     Active Substance: MYCOPHENOLATE MOFETIL\MYCOPHENOLATE MOFETIL HYDROCHLORIDE
     Indication: AORTITIS
  5. MEDROL [Suspect]
     Active Substance: METHYLPREDNISOLONE
     Indication: AORTITIS
  6. LEDERTREXATE [Suspect]
     Active Substance: METHOTREXATE
     Indication: AORTITIS
  7. LEDERTREXATE [Suspect]
     Active Substance: METHOTREXATE
     Indication: TUBULOINTERSTITIAL NEPHRITIS
     Route: 065
  8. AZATHIOPRINE. [Suspect]
     Active Substance: AZATHIOPRINE
     Indication: TUBULOINTERSTITIAL NEPHRITIS
     Route: 065
  9. LISINOPRIL. [Concomitant]
     Active Substance: LISINOPRIL
     Route: 065
     Dates: start: 20151201
  10. DAFALGAN [Concomitant]
     Active Substance: ACETAMINOPHEN
     Dosage: IF NEEDED
     Route: 065
  11. INSULINE [Concomitant]
     Active Substance: INSULIN NOS
     Dosage: 2 E -7 E - 5 E
     Route: 065
     Dates: start: 20160414
  12. AZATHIOPRINE. [Suspect]
     Active Substance: AZATHIOPRINE
     Indication: AORTITIS
  13. MARCOUMAR [Concomitant]
     Active Substance: PHENPROCOUMON
     Route: 065
     Dates: start: 20160331
  14. LANTUS [Concomitant]
     Active Substance: INSULIN GLARGINE
  15. CREON [Concomitant]
     Active Substance: PANCRELIPASE AMYLASE\PANCRELIPASE LIPASE\PANCRELIPASE PROTEASE
     Route: 065
     Dates: start: 20150930
  16. EZETROL [Concomitant]
     Active Substance: EZETIMIBE
     Route: 065
     Dates: start: 20151201

REACTIONS (4)
  - Malaise [Unknown]
  - Nausea [Unknown]
  - Off label use [Unknown]
  - Food intolerance [Unknown]

NARRATIVE: CASE EVENT DATE: 20151102
